APPROVED DRUG PRODUCT: ZIDOVUDINE
Active Ingredient: ZIDOVUDINE
Strength: 100MG
Dosage Form/Route: TABLET;ORAL
Application: N200732 | Product #001
Applicant: PHARMOBEDIENT CONSULTING LLC
Approved: Feb 23, 2011 | RLD: No | RS: No | Type: DISCN